FAERS Safety Report 6064367-3 (Version None)
Quarter: 2009Q1

REPORT INFORMATION
  Report Type: 
  Country: None (occurrence: None)
  Receive Date: 20090203
  Receipt Date: 20090203
  Transmission Date: 20090719
  Serious: Yes (Death)
  Sender: FDA-Public Use
  Company Number: None

PATIENT
  Age: 80 Year
  Sex: Male
  Weight: 63.5036 kg

DRUGS (1)
  1. DETROL LA [Suspect]
     Indication: HYPERTONIC BLADDER
     Dates: start: 20081223, end: 20081226

REACTIONS (8)
  - AGITATION [None]
  - BACTERIA URINE IDENTIFIED [None]
  - CONFUSIONAL STATE [None]
  - EPISTAXIS [None]
  - FALL [None]
  - HALLUCINATION [None]
  - INSOMNIA [None]
  - RESTLESSNESS [None]
